FAERS Safety Report 8422450-9 (Version None)
Quarter: 2012Q2

REPORT INFORMATION
  Report Type: 
  Country: None (occurrence: None)
  Receive Date: 20120608
  Receipt Date: 20120605
  Transmission Date: 20120825
  Serious: Yes (Other)
  Sender: FDA-Public Use
  Company Number: US-PFIZER INC-2012135387

PATIENT
  Sex: Female
  Weight: 59 kg

DRUGS (3)
  1. LYRICA [Suspect]
     Dosage: 50 MG, 2X/DAY
     Route: 048
     Dates: start: 20120401, end: 20120401
  2. LYRICA [Suspect]
     Dosage: 50 MG, 3X/DAY
     Route: 048
     Dates: start: 20120401, end: 20120425
  3. LYRICA [Suspect]
     Indication: PAIN
     Dosage: 50 MG, 1X/DAY
     Route: 048
     Dates: start: 20120401, end: 20120401

REACTIONS (9)
  - PAIN [None]
  - FATIGUE [None]
  - LIMB DISCOMFORT [None]
  - JOINT SWELLING [None]
  - SKIN EXFOLIATION [None]
  - DRUG INEFFECTIVE [None]
  - NECK PAIN [None]
  - WEIGHT INCREASED [None]
  - MONOPARESIS [None]
